FAERS Safety Report 11727456 (Version 1)
Quarter: 2015Q4

REPORT INFORMATION
  Report Type: Spontaneous
  Country: US (occurrence: US)
  Receive Date: 20151112
  Receipt Date: 20151112
  Transmission Date: 20160304
  Serious: No
  Sender: FDA-Public Use
  Company Number: US-JNJFOC-20151108380

PATIENT
  Sex: Female
  Weight: 67.13 kg

DRUGS (3)
  1. LEVOTHYROXINE. [Concomitant]
     Active Substance: LEVOTHYROXINE
     Route: 065
  2. DURAGESIC [Suspect]
     Active Substance: FENTANYL
     Indication: PAIN
     Route: 062
     Dates: start: 201510
  3. PROPRANOLOL [Concomitant]
     Active Substance: PROPRANOLOL\PROPRANOLOL HYDROCHLORIDE
     Indication: HEART RATE
     Route: 065

REACTIONS (3)
  - Wrong technique in product usage process [Unknown]
  - Product adhesion issue [Unknown]
  - Product quality issue [Unknown]

NARRATIVE: CASE EVENT DATE: 2015
